FAERS Safety Report 19076622 (Version 1)
Quarter: 2021Q1

REPORT INFORMATION
  Report Type: Spontaneous
  Country: EG (occurrence: EG)
  Receive Date: 20210331
  Receipt Date: 20210331
  Transmission Date: 20210420
  Serious: Yes (Disabling, Other)
  Sender: FDA-Public Use
  Company Number: EG-HIKMA PHARMACEUTICALS USA INC.-EG-H14001-21-01442

PATIENT
  Age: 50 Year
  Sex: Female

DRUGS (1)
  1. UNITAXEL [Suspect]
     Active Substance: PACLITAXEL
     Indication: BREAST CANCER
     Route: 042

REACTIONS (7)
  - Hypoaesthesia [Unknown]
  - Cataract [Unknown]
  - Ocular hyperaemia [Unknown]
  - Skin discolouration [Unknown]
  - Visual impairment [Unknown]
  - Pain in extremity [Unknown]
  - Breast pain [Unknown]
